FAERS Safety Report 6447453-5 (Version None)
Quarter: 2009Q4

REPORT INFORMATION
  Report Type: 
  Country: None (occurrence: None)
  Receive Date: 20091119
  Receipt Date: 20091109
  Transmission Date: 20100525
  Serious: Yes (Hospitalization)
  Sender: FDA-Public Use
  Company Number: CA-NICOBRDEVP-2009-09621

PATIENT
  Age: 61 Year
  Sex: Male

DRUGS (5)
  1. OXYTROL [Suspect]
     Indication: SALIVARY HYPERSECRETION
     Dosage: 5 MG, BID
     Route: 048
  2. PROCYCLIDINE HYDROCHLORIDE 2MG TAB [Suspect]
     Indication: SALIVARY HYPERSECRETION
     Dosage: 5 MG, BID
  3. CLOZAPINE [Suspect]
     Indication: SCHIZOPHRENIA
     Dosage: 300 MG, BID
  4. LAMOTRIGINE [Concomitant]
     Indication: DRUG USE FOR UNKNOWN INDICATION
     Dosage: 100 MG, BID
  5. FLURAZEPAM [Concomitant]
     Indication: DRUG USE FOR UNKNOWN INDICATION
     Dosage: 15 MG, QHS

REACTIONS (7)
  - ASPIRATION [None]
  - CONSTIPATION [None]
  - FAECALOMA [None]
  - INTESTINAL OBSTRUCTION [None]
  - PNEUMONIA [None]
  - PROCEDURAL VOMITING [None]
  - SEPSIS [None]
